FAERS Safety Report 10018058 (Version 1)
Quarter: 2014Q1

REPORT INFORMATION
  Report Type: Spontaneous
  Country: US (occurrence: US)
  Receive Date: 20140318
  Receipt Date: 20140318
  Transmission Date: 20141002
  Serious: Yes (Hospitalization)
  Sender: FDA-Public Use
  Company Number: US-BRISTOL-MYERS SQUIBB COMPANY-18902536

PATIENT
  Age: 43 Year
  Sex: Male
  Weight: 58.96 kg

DRUGS (5)
  1. ERBITUX [Suspect]
     Indication: TONGUE NEOPLASM MALIGNANT STAGE UNSPECIFIED
  2. NORCO [Concomitant]
  3. METHADONE [Concomitant]
  4. MORPHINE [Concomitant]
     Dosage: PILLS?4-6HR
  5. LIDOCAINE [Concomitant]
     Dosage: VISCOUS

REACTIONS (2)
  - Staphylococcal skin infection [Recovering/Resolving]
  - Dermatitis acneiform [Recovering/Resolving]
